FAERS Safety Report 10191672 (Version 3)
Quarter: 2014Q2

REPORT INFORMATION
  Report Type: Spontaneous
  Country: MY (occurrence: MY)
  Receive Date: 20140523
  Receipt Date: 20140613
  Transmission Date: 20141212
  Serious: Yes (Other)
  Sender: FDA-Public Use
  Company Number: MY-BAXTER-2014BAX021836

PATIENT
  Age: 67 Year
  Sex: Male

DRUGS (1)
  1. BAXTER DIANEAL LOW CALCIUM (2.5MEQ/L) PERITONEAL DIALYSIS SOLUTION WIT [Suspect]
     Indication: PERITONEAL DIALYSIS
     Route: 033

REACTIONS (2)
  - Peritonitis bacterial [Recovered/Resolved]
  - Peritoneal dialysis complication [Unknown]
